FAERS Safety Report 20455762 (Version 1)
Quarter: 2022Q1

REPORT INFORMATION
  Report Type: Spontaneous
  Country: US (occurrence: US)
  Receive Date: 20220210
  Receipt Date: 20220210
  Transmission Date: 20220423
  Serious: Yes (Death, Hospitalization)
  Sender: FDA-Public Use
  Company Number: US-MYLANLABS-2022M1011223

PATIENT
  Age: 63 Year
  Sex: Female

DRUGS (2)
  1. KETOCONAZOLE [Suspect]
     Active Substance: KETOCONAZOLE
     Indication: Mucormycosis
     Dosage: UNK
     Route: 061
  2. AMPHOTERICIN B [Suspect]
     Active Substance: AMPHOTERICIN B
     Indication: Mucormycosis
     Dosage: 250 MILLIGRAM, QD, 5 MG/KG FOR A TOTAL DOSAGE OF 6.25G OVER 25 DAYS
     Route: 042

REACTIONS (1)
  - Drug ineffective [Fatal]
